FAERS Safety Report 23487338 (Version 1)
Quarter: 2024Q1

REPORT INFORMATION
  Report Type: Spontaneous
  Country: US (occurrence: None)
  Receive Date: 20240205
  Receipt Date: 20240205
  Transmission Date: 20240410
  Serious: Yes (Disabling)
  Sender: FDA-Public Use
  Company Number: None

PATIENT
  Age: 38 Year
  Sex: Male
  Weight: 108 kg

DRUGS (10)
  1. LEVOFLOXACIN [Suspect]
     Active Substance: LEVOFLOXACIN
     Indication: Epididymitis
     Dosage: OTHER QUANTITY : 10 TABLET(S);?
     Route: 048
     Dates: start: 20240201, end: 20240201
  2. Men^s whole food multivatimin [Concomitant]
  3. VITAMIN D3 [Concomitant]
     Active Substance: CHOLECALCIFEROL
  4. VITAMIN C [Concomitant]
     Active Substance: ASCORBIC ACID
  5. MAGNESIUM [Concomitant]
     Active Substance: MAGNESIUM
  6. NMN [Concomitant]
     Active Substance: NICOTINAMIDE RIBOTIDE\RESVERATROL
  7. ZINC [Concomitant]
     Active Substance: PYRITHIONE ZINC\ZINC\ZINC CHLORIDE
  8. VITAMIN E [Concomitant]
     Active Substance: .ALPHA.-TOCOPHEROL
  9. QUERCETIN [Concomitant]
     Active Substance: QUERCETIN
  10. NAC [Concomitant]

REACTIONS (5)
  - Paraesthesia [None]
  - Tendon pain [None]
  - Muscle twitching [None]
  - Nerve injury [None]
  - Gait disturbance [None]

NARRATIVE: CASE EVENT DATE: 20240201
